FAERS Safety Report 11699696 (Version 1)
Quarter: 2015Q4

REPORT INFORMATION
  Report Type: Spontaneous
  Country: US (occurrence: US)
  Receive Date: 20151105
  Receipt Date: 20151105
  Transmission Date: 20160304
  Serious: Yes (Hospitalization)
  Sender: FDA-Public Use
  Company Number: US-RECORDATI RARE DISEASES-US-R13005-15-00171

PATIENT
  Age: 37 Year
  Sex: Female
  Weight: 61.6 kg

DRUGS (4)
  1. PANHEMATIN [Suspect]
     Active Substance: HEMIN
     Indication: PORPHYRIA ACUTE
     Route: 040
  2. PANHEMATIN [Suspect]
     Active Substance: HEMIN
     Dosage: 2 DOSES
     Route: 040
     Dates: start: 201509, end: 201509
  3. PANHEMATIN [Suspect]
     Active Substance: HEMIN
     Dosage: 4 DOSES
     Route: 040
     Dates: start: 20151012, end: 201510
  4. PANHEMATIN [Suspect]
     Active Substance: HEMIN
     Dosage: 6 DOSES
     Route: 040
     Dates: start: 20151022, end: 20151027

REACTIONS (3)
  - Inappropriate schedule of drug administration [Recovered/Resolved]
  - Dyspnoea [Recovered/Resolved]
  - Exposure during pregnancy [Unknown]

NARRATIVE: CASE EVENT DATE: 20150914
